FAERS Safety Report 16337279 (Version 2)
Quarter: 2019Q2

REPORT INFORMATION
  Report Type: Spontaneous
  Country: US (occurrence: US)
  Receive Date: 20190521
  Receipt Date: 20190626
  Transmission Date: 20190711
  Serious: Yes (Death)
  Sender: FDA-Public Use
  Company Number: US-ROCHE-2321454

PATIENT
  Age: 48 Year
  Sex: Female

DRUGS (13)
  1. PREDNISONE. [Concomitant]
     Active Substance: PREDNISONE
     Dosage: TAPER DOWN
     Route: 065
  2. FUROSEMIDE. [Concomitant]
     Active Substance: FUROSEMIDE
     Dosage: 1/2 A PILL AS NEEDED
     Route: 065
  3. TRAMADOL. [Concomitant]
     Active Substance: TRAMADOL
     Route: 065
  4. DULOXETINE. [Concomitant]
     Active Substance: DULOXETINE
     Route: 065
  5. METHYLPHENIDATE. [Concomitant]
     Active Substance: METHYLPHENIDATE
     Route: 065
  6. ALBUTEROL [SALBUTAMOL] [Concomitant]
     Active Substance: ALBUTEROL
     Dosage: ONE BREATHING TREATMENT
     Route: 065
  7. MONTELUKAST [Concomitant]
     Active Substance: MONTELUKAST SODIUM
     Dosage: AT NIGHT
     Route: 065
  8. OCREVUS [Suspect]
     Active Substance: OCRELIZUMAB
     Indication: MULTIPLE SCLEROSIS
     Dosage: SUBSEQUENT DOSES ON: 21/NOV/2018 AND 07/MAY/2019
     Route: 065
     Dates: start: 20181106, end: 20190507
  9. LISINOPRIL/HCTZ [Concomitant]
     Active Substance: HYDROCHLOROTHIAZIDE\LISINOPRIL
     Dosage: 20/12.5 MG ONCE A DAY
     Route: 065
  10. GABAPENTIN. [Concomitant]
     Active Substance: GABAPENTIN
     Route: 065
  11. BACLOFEN. [Concomitant]
     Active Substance: BACLOFEN
     Route: 065
  12. DALFAMPRIDINE. [Concomitant]
     Active Substance: DALFAMPRIDINE
     Route: 065
  13. SIMVASTATIN. [Concomitant]
     Active Substance: SIMVASTATIN
     Dosage: NIGHTLY
     Route: 065

REACTIONS (2)
  - Myocardial infarction [Fatal]
  - Abdominal pain upper [Unknown]

NARRATIVE: CASE EVENT DATE: 20190515
